FAERS Safety Report 7967589-7 (Version None)
Quarter: 2011Q4

REPORT INFORMATION
  Report Type: 
  Country: None (occurrence: None)
  Receive Date: 20111209
  Receipt Date: 20111206
  Transmission Date: 20120403
  Serious: Yes (Life-Threatening, Hospitalization)
  Sender: FDA-Public Use
  Company Number: DE-B.I. PHARMACEUTICALS,INC./RIDGEFIELD-2011-DE-05166DE

PATIENT
  Sex: Male
  Weight: 76.9 kg

DRUGS (14)
  1. APSOMOL [Concomitant]
     Dosage: PRN
  2. TORSEMIDE [Concomitant]
  3. LORAZEPAM [Concomitant]
  4. ACETYLCYSTEINE [Concomitant]
  5. MOVIPREP [Concomitant]
  6. LEVOFLOXACIN [Concomitant]
  7. MARCUMAR [Concomitant]
  8. BERODUAL LS [Suspect]
     Dosage: 2 ANZ
  9. DAXAS [Concomitant]
     Indication: CHRONIC OBSTRUCTIVE PULMONARY DISEASE
     Dosage: 500 MCG
     Route: 048
     Dates: start: 20110907
  10. SPIRIVA [Suspect]
     Indication: CHRONIC OBSTRUCTIVE PULMONARY DISEASE
     Dosage: 2 PUF
     Route: 055
     Dates: start: 20110906, end: 20110914
  11. INSPRA [Concomitant]
  12. FORMATRIS [Concomitant]
     Indication: CHRONIC OBSTRUCTIVE PULMONARY DISEASE
     Dosage: 24 MCG
     Route: 055
     Dates: start: 20110906, end: 20110914
  13. PREDNISOLONE [Concomitant]
  14. PANTOPRAZOLE [Concomitant]

REACTIONS (3)
  - CONSTIPATION [None]
  - ILEUS [None]
  - URINARY RETENTION [None]
